FAERS Safety Report 5794365-6 (Version None)
Quarter: 2008Q2

REPORT INFORMATION
  Report Type: 
  Country: None (occurrence: None)
  Receive Date: 20080625
  Receipt Date: 20080612
  Transmission Date: 20081010
  Serious: Yes (Hospitalization)
  Sender: FDA-Public Use
  Company Number: 2008BI013077

PATIENT
  Age: 46 Year
  Sex: Male

DRUGS (7)
  1. TYSABRI [Suspect]
     Indication: MULTIPLE SCLEROSIS
     Dosage: 300 MG; QM; IV
     Route: 042
     Dates: start: 20080104, end: 20080417
  2. PROZAC [Concomitant]
  3. PREVACID [Concomitant]
  4. VICODIN [Concomitant]
  5. SPIRIVA [Concomitant]
  6. ALBUTEROL [Concomitant]
  7. ADVAIR DISKUS 100/50 [Concomitant]

REACTIONS (7)
  - CHEST PAIN [None]
  - CHRONIC OBSTRUCTIVE PULMONARY DISEASE [None]
  - CONDITION AGGRAVATED [None]
  - FACIAL PALSY [None]
  - MIGRAINE [None]
  - MULTIPLE SCLEROSIS [None]
  - OPPORTUNISTIC INFECTION [None]
